FAERS Safety Report 8776887 (Version 7)
Quarter: 2014Q1

REPORT INFORMATION
  Report Type: Spontaneous
  Country: GB (occurrence: GB)
  Receive Date: 20120911
  Receipt Date: 20140307
  Transmission Date: 20141002
  Serious: Yes (Other)
  Sender: FDA-Public Use
  Company Number: GB-JNJFOC-20120901424

PATIENT
  Age: 47 Year
  Sex: Male
  Weight: 148.2 kg

DRUGS (6)
  1. STELARA [Suspect]
     Indication: PSORIASIS
     Route: 058
     Dates: start: 20121025
  2. STELARA [Suspect]
     Indication: PSORIASIS
     Dosage: 21-JUN-2012
     Route: 058
     Dates: start: 20120621
  3. STELARA [Suspect]
     Indication: PSORIASIS
     Route: 058
  4. STELARA [Suspect]
     Indication: PSORIASIS
     Route: 058
     Dates: start: 20120716
  5. METFORMIN [Concomitant]
     Indication: DIABETES MELLITUS
     Route: 048
     Dates: start: 201209
  6. FENOFIBRATE [Concomitant]
     Indication: BLOOD TRIGLYCERIDES
     Route: 048

REACTIONS (5)
  - Malignant melanoma [Recovered/Resolved]
  - Wound infection [Recovered/Resolved]
  - Sunburn [Unknown]
  - Stress [Unknown]
  - Confusional state [Unknown]
